FAERS Safety Report 11617698 (Version 3)
Quarter: 2015Q4

REPORT INFORMATION
  Report Type: Spontaneous
  Country: BR (occurrence: BR)
  Receive Date: 20151009
  Receipt Date: 20151111
  Transmission Date: 20160304
  Serious: Yes (Other)
  Sender: FDA-Public Use
  Company Number: BR-ELI_LILLY_AND_COMPANY-BR201509009923

PATIENT
  Age: 67 Year
  Sex: Female
  Weight: 65.7 kg

DRUGS (10)
  1. PROPRANOLOL [Concomitant]
     Active Substance: PROPRANOLOL\PROPRANOLOL HYDROCHLORIDE
     Dosage: 40 MG, BID
     Route: 065
  2. OXPLATIN [Concomitant]
     Indication: THYROID CANCER
     Dosage: 155 MG, CYCLICAL
     Route: 042
     Dates: start: 20150904, end: 20150904
  3. GEMZAR [Suspect]
     Active Substance: GEMCITABINE HYDROCHLORIDE
     Dosage: 1550 MG, CYCLICAL
     Route: 042
     Dates: start: 20150916, end: 20150916
  4. GEMZAR [Suspect]
     Active Substance: GEMCITABINE HYDROCHLORIDE
     Indication: THYROID CANCER
     Dosage: 1550 MG, CYCLICAL
     Route: 042
     Dates: start: 20150904
  5. OXPLATIN [Concomitant]
     Dosage: 155 MG, CYCLICAL
     Route: 042
     Dates: start: 20150916, end: 20150916
  6. AAS [Concomitant]
     Active Substance: ASPIRIN
     Dosage: 100 MG, QD
     Route: 065
  7. DEXAMETASONA                       /00016001/ [Concomitant]
     Dosage: 10 MG, PRN
     Route: 042
     Dates: start: 20150916, end: 20150916
  8. NAUSEDRON [Concomitant]
     Active Substance: ONDANSETRON HYDROCHLORIDE
     Dosage: 1 DF, PRN
     Route: 042
  9. GEMZAR [Suspect]
     Active Substance: GEMCITABINE HYDROCHLORIDE
     Dosage: UNK UNK, CYCLICAL
     Route: 042
     Dates: start: 20151007
  10. EUTHYROX [Concomitant]
     Active Substance: LEVOTHYROXINE SODIUM
     Dosage: 100 MG, QD
     Route: 065

REACTIONS (9)
  - Hypertension [Recovered/Resolved]
  - Hypertension [Recovered/Resolved]
  - Dyspnoea [Recovered/Resolved]
  - Tachycardia [Recovered/Resolved]
  - Tachycardia [Recovered/Resolved]
  - Hypoxia [Recovered/Resolved]
  - Off label use [Unknown]
  - Dyspnoea [Recovered/Resolved]
  - Hypoxia [Recovered/Resolved]

NARRATIVE: CASE EVENT DATE: 20150916
